FAERS Safety Report 10218632 (Version 3)
Quarter: 2014Q3

REPORT INFORMATION
  Report Type: Spontaneous
  Country: US (occurrence: US)
  Receive Date: 20140605
  Receipt Date: 20140721
  Transmission Date: 20150326
  Serious: No
  Sender: FDA-Public Use
  Company Number: US-PFIZER INC-2014151538

PATIENT

DRUGS (1)
  1. LYRICA [Suspect]
     Active Substance: PREGABALIN
     Indication: PAIN IN EXTREMITY
     Dosage: 100 MG, TWO TO THREE TIMES A DAY

REACTIONS (7)
  - Abnormal dreams [Unknown]
  - Fatigue [Unknown]
  - Pain [Unknown]
  - Drug withdrawal syndrome [Unknown]
  - Hyperaesthesia [Unknown]
  - Malaise [Unknown]
  - Feeling abnormal [Unknown]
